FAERS Safety Report 16679358 (Version 1)
Quarter: 2019Q3

REPORT INFORMATION
  Report Type: Spontaneous
  Country: ES (occurrence: ES)
  Receive Date: 20190807
  Receipt Date: 20190807
  Transmission Date: 20191004
  Serious: Yes (Other)
  Sender: FDA-Public Use
  Company Number: ES-MYLANLABS-2019M1073260

PATIENT
  Age: 66 Year
  Sex: Female

DRUGS (1)
  1. IMATINIB. [Suspect]
     Active Substance: IMATINIB MESYLATE
     Indication: CHRONIC MYELOID LEUKAEMIA
     Dosage: 800 MILLIGRAM
     Route: 048
     Dates: start: 200206

REACTIONS (6)
  - Pancytopenia [Unknown]
  - Pericardial effusion [Recovered/Resolved]
  - Therapy non-responder [Unknown]
  - Philadelphia chromosome positive [Unknown]
  - Pleural effusion [Unknown]
  - Dyspnoea [Unknown]
